FAERS Safety Report 6719778-7 (Version None)
Quarter: 2010Q2

REPORT INFORMATION
  Report Type: 
  Country: None (occurrence: None)
  Receive Date: 20100511
  Receipt Date: 20100504
  Transmission Date: 20101027
  Serious: Yes (Other)
  Sender: FDA-Public Use
  Company Number: B0637401A

PATIENT
  Sex: Female
  Weight: 96 kg

DRUGS (5)
  1. VENTOLIN [Suspect]
     Indication: ASTHMA
     Dosage: 2PUFF PER DAY
     Route: 055
     Dates: start: 20100205, end: 20100205
  2. ZANIDIP [Concomitant]
     Dosage: 20MG PER DAY
     Route: 048
     Dates: start: 20100301
  3. COAPROVEL [Concomitant]
     Dosage: 1UNIT PER DAY
     Route: 048
     Dates: start: 20030101
  4. LIPANTHYL [Concomitant]
     Dosage: 145MG PER DAY
     Route: 048
     Dates: start: 20060101
  5. ZOLPIDEM [Concomitant]
     Indication: INSOMNIA
     Dosage: 10MG PER DAY
     Route: 048
     Dates: start: 20010101

REACTIONS (7)
  - ASPHYXIA [None]
  - BRONCHOSPASM [None]
  - COUGH [None]
  - DYSPNOEA [None]
  - FEELING ABNORMAL [None]
  - PRODUCT QUALITY ISSUE [None]
  - PRODUCT TASTE ABNORMAL [None]
